FAERS Safety Report 4984395-6 (Version None)
Quarter: 2006Q2

REPORT INFORMATION
  Report Type: 
  Country: None (occurrence: None)
  Receive Date: 20060420
  Receipt Date: 20060411
  Transmission Date: 20061013
  Serious: Yes (Hospitalization)
  Sender: FDA-Public Use
  Company Number: 2006050317

PATIENT

DRUGS (2)
  1. AZULFIDINE EN (AZULFIDINE ) [Suspect]
     Indication: RHEUMATOID ARTHRITIS
     Dosage: 1 GRAM (DAILY), ORAL
     Route: 048
  2. DRUG, UNSPECIFIED (DRUG UNSPECIFIED) [Concomitant]

REACTIONS (1)
  - RENAL FAILURE [None]
